FAERS Safety Report 24237604 (Version 1)
Quarter: 2024Q3

REPORT INFORMATION
  Report Type: Spontaneous
  Country: US (occurrence: US)
  Receive Date: 20240822
  Receipt Date: 20240822
  Transmission Date: 20241016
  Serious: No
  Sender: ROCHE
  Company Number: US-ROCHE-10000059564

PATIENT
  Sex: Female
  Weight: 60.78 kg

DRUGS (4)
  1. AVASTIN [Suspect]
     Active Substance: BEVACIZUMAB
     Indication: Ovarian cancer
     Route: 065
  2. HERBALS\TURMERIC [Concomitant]
     Active Substance: HERBALS\TURMERIC
     Dates: start: 202407
  3. VITAMIN B COMPLEX [Concomitant]
     Active Substance: CYANOCOBALAMIN\DEXPANTHENOL\NIACINAMIDE\PYRIDOXINE HYDROCHLORIDE\RIBOFLAVIN 5^-PHOSPHATE SODIUM\THIA
     Dates: start: 202407
  4. MAGNESSIUM [Concomitant]
     Dates: start: 202407

REACTIONS (1)
  - Blood magnesium decreased [Not Recovered/Not Resolved]
